FAERS Safety Report 7721425-2 (Version None)
Quarter: 2011Q3

REPORT INFORMATION
  Report Type: 
  Country: None (occurrence: None)
  Receive Date: 20110831
  Receipt Date: 20110822
  Transmission Date: 20111222
  Serious: No
  Sender: FDA-Public Use
  Company Number: NL-ASTRAZENECA-2011SE43691

PATIENT
  Age: 23698 Day
  Sex: Male
  Weight: 88 kg

DRUGS (5)
  1. LANOXIN [Concomitant]
     Indication: ATRIAL FIBRILLATION
     Route: 048
     Dates: start: 20050101
  2. FINASTERIDE [Concomitant]
     Indication: PROSTATIC DISORDER
     Dosage: 3 TIMES A WEEK
     Route: 048
     Dates: start: 20070101
  3. FENPROCCOUMON [Concomitant]
     Indication: ATRIAL FIBRILLATION
     Route: 048
     Dates: start: 20050101
  4. FAMOTIDINE [Concomitant]
     Indication: GASTROOESOPHAGEAL REFLUX DISEASE
     Route: 048
     Dates: start: 20110201
  5. GEFITINIB [Suspect]
     Indication: NON-SMALL CELL LUNG CANCER STAGE IV
     Route: 048
     Dates: start: 20110524, end: 20110718

REACTIONS (1)
  - HEPATIC ENZYME INCREASED [None]
